FAERS Safety Report 6422988-X (Version None)
Quarter: 2009Q4

REPORT INFORMATION
  Report Type: 
  Country: None (occurrence: None)
  Receive Date: 20091102
  Receipt Date: 20091023
  Transmission Date: 20100525
  Serious: Yes (Death, Life-Threatening)
  Sender: FDA-Public Use
  Company Number: JP-BAYER-200911567BYL

PATIENT
  Age: 64 Year
  Sex: Male
  Weight: 53 kg

DRUGS (12)
  1. FLUDARA [Suspect]
     Indication: MYELODYSPLASTIC SYNDROME
     Dosage: TOTAL DAILY DOSE: 47 MG  UNIT DOSE: 50 MG
     Route: 042
     Dates: start: 20080909, end: 20080914
  2. BUSULFEX [Concomitant]
     Indication: MYELODYSPLASTIC SYNDROME
     Dosage: TOTAL DAILY DOSE: 164.8 MG
     Route: 042
     Dates: start: 20080910, end: 20080913
  3. DEPAKENE [Concomitant]
     Indication: CONVULSION PROPHYLAXIS
     Dosage: TOTAL DAILY DOSE: 1200 MG
     Route: 048
     Dates: start: 20080909, end: 20080916
  4. SANDIMMUNE [Concomitant]
     Dosage: TOTAL DAILY DOSE: 250 MG
     Route: 042
     Dates: start: 20080916, end: 20080919
  5. METHOTREXATE [Concomitant]
     Dosage: TOTAL DAILY DOSE: 7.8 MG
     Route: 042
     Dates: start: 20080918, end: 20080918
  6. FUNGUARD [Concomitant]
     Dosage: TOTAL DAILY DOSE: 50 MG
     Route: 042
     Dates: start: 20080909, end: 20080920
  7. KYTRIL [Concomitant]
     Dosage: TOTAL DAILY DOSE: 3 MG
     Route: 042
     Dates: start: 20080909, end: 20080914
  8. NONTHRON [Concomitant]
     Dosage: TOTAL DAILY DOSE: 1500 U
     Route: 042
     Dates: start: 20080912, end: 20080913
  9. NOVO HEPARIN [Concomitant]
     Dosage: TOTAL DAILY DOSE: 5000 U
     Route: 042
     Dates: start: 20080916, end: 20080918
  10. NOVO HEPARIN [Concomitant]
     Dosage: TOTAL DAILY DOSE: 5000 U
     Route: 042
     Dates: start: 20080909, end: 20080911
  11. CONCENTRATED RED CELLS [Concomitant]
     Indication: PACKED RED BLOOD CELL TRANSFUSION
     Route: 042
     Dates: start: 20080910, end: 20080920
  12. PLATELETS [Concomitant]
     Indication: PLATELET TRANSFUSION
     Route: 042
     Dates: start: 20080910, end: 20080920

REACTIONS (2)
  - CEREBRAL HAEMORRHAGE [None]
  - SEPSIS [None]
